FAERS Safety Report 10716265 (Version 1)
Quarter: 2015Q1

REPORT INFORMATION
  Report Type: Spontaneous
  Country: US (occurrence: None)
  Receive Date: 20150109
  Receipt Date: 20150109
  Transmission Date: 20150721
  Serious: Yes (Hospitalization)
  Sender: FDA-Public Use
  Company Number: 2014PROUSA03858

PATIENT
  Age: 72 Year
  Sex: Male
  Weight: 90.7 kg

DRUGS (18)
  1. FLOMAX [Concomitant]
     Active Substance: TAMSULOSIN HYDROCHLORIDE
  2. FLUTAMIDE. [Concomitant]
     Active Substance: FLUTAMIDE
  3. CARVEDILOL. [Concomitant]
     Active Substance: CARVEDILOL
  4. BENAZEPRIL HYDROCHLORIDE. [Concomitant]
     Active Substance: BENAZEPRIL HYDROCHLORIDE
  5. CALCIUM + D (CALCIUM CARBONATE, COLECALCIFEROL) [Concomitant]
  6. ALLOPURINOL. [Concomitant]
     Active Substance: ALLOPURINOL
  7. ASPIRIN (ACETYLSALICYLIC ACID) [Concomitant]
     Active Substance: ASPIRIN
  8. PROVENGE [Suspect]
     Active Substance: SIPULEUCEL-T
     Indication: PROSTATE CANCER METASTATIC
     Dosage: SINGLE
     Route: 042
     Dates: start: 20140623, end: 20140623
  9. ENZALUTAMIDE [Concomitant]
     Active Substance: ENZALUTAMIDE
  10. PROTONIX [Concomitant]
     Active Substance: PANTOPRAZOLE SODIUM
  11. NORCO (HYDROCODONE BITARTRATE, PARACETAMOL) [Concomitant]
  12. ZOLEDRONIC ACID [Concomitant]
     Active Substance: ZOLEDRONIC ACID
  13. TYLENOL [Concomitant]
     Active Substance: ACETAMINOPHEN
  14. FELODIPINE. [Concomitant]
     Active Substance: FELODIPINE
  15. SIMVASTATIN. [Concomitant]
     Active Substance: SIMVASTATIN
  16. GLYBURIDE. [Concomitant]
     Active Substance: GLYBURIDE
  17. HYDROCHLOROTHIAZIDE. [Concomitant]
     Active Substance: HYDROCHLOROTHIAZIDE
  18. ONDANSETRON HCL (ONDANSETRON HYDROCHLORIDE) [Concomitant]
     Active Substance: ONDANSETRON HYDROCHLORIDE

REACTIONS (9)
  - Thrombocytopenia [None]
  - Asthenia [None]
  - Anaemia [None]
  - Abdominal pain upper [None]
  - Urinary retention [None]
  - Muscular weakness [None]
  - Back pain [None]
  - Hypokalaemia [None]
  - Dysarthria [None]

NARRATIVE: CASE EVENT DATE: 20140619
